FAERS Safety Report 7809887-3 (Version None)
Quarter: 2011Q4

REPORT INFORMATION
  Report Type: 
  Country: None (occurrence: None)
  Receive Date: 20111012
  Receipt Date: 20111003
  Transmission Date: 20120403
  Serious: Yes (Other)
  Sender: FDA-Public Use
  Company Number: PHHY2011DK87441

PATIENT
  Sex: Female

DRUGS (2)
  1. METHOTREXATE [Suspect]
     Indication: RHEUMATOID ARTHRITIS
     Route: 048
     Dates: start: 20060919, end: 20070322
  2. METHOTREXATE [Suspect]
     Route: 048
     Dates: start: 20070705

REACTIONS (2)
  - COLON CANCER [None]
  - METASTASES TO LIVER [None]
